FAERS Safety Report 25951589 (Version 2)
Quarter: 2025Q4

REPORT INFORMATION
  Report Type: Report from Study
  Country: US (occurrence: US)
  Receive Date: 20251023
  Receipt Date: 20251028
  Transmission Date: 20260117
  Serious: Yes (Other)
  Sender: ABBVIE
  Company Number: US-ABBVIE-6512069

PATIENT
  Age: 70 Year
  Sex: Female

DRUGS (1)
  1. UBROGEPANT [Suspect]
     Active Substance: UBROGEPANT
     Indication: Product used for unknown indication
     Route: 048

REACTIONS (9)
  - Ovarian cancer [Unknown]
  - Haematemesis [Unknown]
  - Uterine haemorrhage [Unknown]
  - Tendon operation [Unknown]
  - Musculoskeletal disorder [Unknown]
  - Osteoarthritis [Unknown]
  - Rheumatoid arthritis [Unknown]
  - Insomnia [Unknown]
  - Migraine [Unknown]

NARRATIVE: CASE EVENT DATE: 20250401
